FAERS Safety Report 26109985 (Version 1)
Quarter: 2025Q4

REPORT INFORMATION
  Report Type: Spontaneous
  Country: CN (occurrence: CN)
  Receive Date: 20251201
  Receipt Date: 20251201
  Transmission Date: 20260117
  Serious: Yes (Other)
  Sender: ABBVIE
  Company Number: CN-ABBVIE-6570323

PATIENT
  Age: 70 Year
  Sex: Male
  Weight: 65 kg

DRUGS (4)
  1. VENETOCLAX [Suspect]
     Active Substance: VENETOCLAX
     Indication: Acute myeloid leukaemia
     Dosage: DAY 1 FORM STRENGTH: 100 MILLIGRAMS
     Route: 048
     Dates: start: 20251104, end: 20251104
  2. VENETOCLAX [Suspect]
     Active Substance: VENETOCLAX
     Indication: Acute myeloid leukaemia
     Dosage: DAY 2 FORM STRENGTH: 100 MILLIGRAMS
     Route: 048
     Dates: start: 20251105, end: 20251105
  3. VENETOCLAX [Suspect]
     Active Substance: VENETOCLAX
     Indication: Acute myeloid leukaemia
     Dosage: DAY 3 TO 14 FORM STRENGTH: 100 MILLIGRAMS
     Route: 048
     Dates: start: 20251106, end: 20251113
  4. DECITABINE [Suspect]
     Active Substance: DECITABINE
     Indication: Chemotherapy
     Dosage: DAY 3 TO 7 INTRAVENOUS DRIP
     Route: 065
     Dates: start: 20251106, end: 20251110

REACTIONS (1)
  - Full blood count decreased [Recovering/Resolving]

NARRATIVE: CASE EVENT DATE: 20251107
